FAERS Safety Report 8016885-6 (Version None)
Quarter: 2012Q1

REPORT INFORMATION
  Report Type: 
  Country: None (occurrence: None)
  Receive Date: 20120102
  Receipt Date: 20111221
  Transmission Date: 20120608
  Serious: Yes (Other)
  Sender: FDA-Public Use
  Company Number: PHEH2011US011172

PATIENT
  Sex: Female

DRUGS (10)
  1. HYDROCODONE BITARTRATE [Concomitant]
  2. SPIRONOLACTONE [Concomitant]
  3. GLEEVEC [Suspect]
     Indication: CHRONIC MYELOID LEUKAEMIA
     Dosage: 400 MG, QD
     Route: 048
     Dates: start: 20110329, end: 20110606
  4. NOVOLIN 70/30 [Concomitant]
  5. DILTIAZEM HCL [Concomitant]
  6. PREDNISONE [Concomitant]
  7. LASIX [Concomitant]
  8. GLEEVEC [Suspect]
     Dosage: 400 MG, QD
     Route: 048
  9. NEXIUM [Concomitant]
  10. LEXAPRO [Concomitant]

REACTIONS (6)
  - SKIN REACTION [None]
  - CHEILITIS [None]
  - SKIN EXFOLIATION [None]
  - RASH MACULAR [None]
  - ORAL PAIN [None]
  - DRY SKIN [None]
